FAERS Safety Report 8356556-X (Version None)
Quarter: 2012Q2

REPORT INFORMATION
  Report Type: 
  Country: None (occurrence: None)
  Receive Date: 20120514
  Receipt Date: 20120507
  Transmission Date: 20120825
  Serious: Yes (Other)
  Sender: FDA-Public Use
  Company Number: PHHY2012BR040122

PATIENT
  Age: 64 Year
  Sex: Female

DRUGS (1)
  1. EXFORGE [Suspect]
     Indication: HYPERTENSION
     Dosage: 1 TABLET DAILY

REACTIONS (2)
  - ISCHAEMIA [None]
  - BLOOD PRESSURE INADEQUATELY CONTROLLED [None]
